FAERS Safety Report 10185392 (Version 1)
Quarter: 2014Q2

REPORT INFORMATION
  Report Type: Report from Study
  Country: US (occurrence: US)
  Receive Date: 20140521
  Receipt Date: 20140521
  Transmission Date: 20141212
  Serious: Yes (Hospitalization, Other)
  Sender: FDA-Public Use
  Company Number: PHEH2014US009467

PATIENT
  Sex: Female

DRUGS (10)
  1. PEXEVA [Concomitant]
     Dosage: UNK UKN, UNK
  2. PREDNISONE [Concomitant]
     Dosage: UNK UKN, UNK
  3. NADOLOL [Concomitant]
     Dosage: UNK UKN, UNK
  4. DIOVAN [Suspect]
     Dosage: 160 MG PER DAY
  5. DIOVAN [Suspect]
     Dosage: 2 DF (160MG) A DAY
  6. DOXAZOSIN [Suspect]
     Dosage: UNK UKN, UNK
  7. DILTIAZEM [Suspect]
     Dosage: UNK UKN, UNK
  8. PLAQUENOL [Suspect]
     Dosage: 2 DF PER DAY
  9. PLAQUENOL [Suspect]
     Dosage: 1 DF PER DAY
  10. PRAVASTATIN [Concomitant]
     Dosage: UNK UKN, UNK

REACTIONS (5)
  - Nephrolithiasis [Unknown]
  - Rib fracture [Unknown]
  - Road traffic accident [Unknown]
  - Macular degeneration [Unknown]
  - Oedema peripheral [Unknown]
